FAERS Safety Report 16017705 (Version 1)
Quarter: 2019Q1

REPORT INFORMATION
  Report Type: Spontaneous
  Country: US (occurrence: US)
  Receive Date: 20190228
  Receipt Date: 20190228
  Transmission Date: 20190418
  Serious: No
  Sender: FDA-Public Use
  Company Number: US-ABBVIE-18S-163-2599447-00

PATIENT

DRUGS (1)
  1. TESTOGEL [Suspect]
     Active Substance: TESTOSTERONE
     Indication: PRODUCT USED FOR UNKNOWN INDICATION
     Route: 065
     Dates: start: 201511

REACTIONS (3)
  - Malaise [Unknown]
  - Nausea [Unknown]
  - Influenza like illness [Unknown]
